FAERS Safety Report 13012270 (Version 6)
Quarter: 2019Q4

REPORT INFORMATION
  Report Type: Spontaneous
  Country: US (occurrence: US)
  Receive Date: 20161209
  Receipt Date: 20191218
  Transmission Date: 20200122
  Serious: No
  Sender: FDA-Public Use
  Company Number: US-PFIZER INC-2016540010

PATIENT
  Age: 4 Year
  Sex: Female
  Weight: 13.5 kg

DRUGS (12)
  1. GENOTROPIN [Suspect]
     Active Substance: SOMATROPIN
     Dosage: 0.7 MG, DAILY
     Route: 058
     Dates: start: 20161101
  2. MIRALAX [Concomitant]
     Active Substance: POLYETHYLENE GLYCOL 3350
     Dosage: UNK (1/4 OF A CAP WITH 2 OZ OF WATER THROUGH THE G TUBE)
  3. GENOTROPIN [Suspect]
     Active Substance: SOMATROPIN
     Dosage: UNK
  4. GENOTROPIN [Suspect]
     Active Substance: SOMATROPIN
     Dosage: 0.6 MG, UNK
     Dates: start: 201707
  5. GENOTROPIN [Suspect]
     Active Substance: SOMATROPIN
     Dosage: 0.7 MG, DAILY (7 DAYS A WEEK)
     Route: 058
     Dates: start: 20161017, end: 20191209
  6. GENOTROPIN [Suspect]
     Active Substance: SOMATROPIN
     Indication: GROWTH RETARDATION
     Dosage: 0.3 MG, 1X/DAY; RECEIVES LEGS, TUMMY, AND REAR END, ONCE A DAY
     Dates: start: 201611
  7. GENOTROPIN [Suspect]
     Active Substance: SOMATROPIN
     Indication: PREMATURE BABY
     Dosage: 0.5 MG, 1X/DAY; RECEIVES LEGS, TUMMY, AND REAR END, ONCE A DAY
     Dates: start: 201611
  8. GENOTROPIN [Suspect]
     Active Substance: SOMATROPIN
     Indication: SMALL FOR DATES BABY
     Dosage: 0.5 MG, DAILY
     Dates: start: 201611
  9. VITAMIN D /00107901/ [Concomitant]
     Active Substance: ERGOCALCIFEROL
     Indication: SUPPLEMENTATION THERAPY
     Dosage: 1 ML, DAILY (THROUGH THE G TUBE)
  10. CYPROHEPTADINE. [Concomitant]
     Active Substance: CYPROHEPTADINE
     Indication: DECREASED APPETITE
     Dosage: 2.4 ML, 3X/DAY; 2.4ML EVERY DAY, EVERY EIGHT HOURS
     Dates: start: 2016
  11. OMEPRAZOLE. [Concomitant]
     Active Substance: OMEPRAZOLE
     Indication: GASTROOESOPHAGEAL REFLUX DISEASE
     Dosage: 2.1 MG, 2X/DAY (THROUGH A CATHETER)
  12. MIRALAX [Concomitant]
     Active Substance: POLYETHYLENE GLYCOL 3350
     Indication: CONSTIPATION
     Dosage: UNK, DAILY
     Dates: start: 2013

REACTIONS (5)
  - Device malfunction [Unknown]
  - Product dose omission [Unknown]
  - Intentional product misuse [Recovered/Resolved]
  - Injection site bruising [Recovered/Resolved]
  - Wrong technique in product usage process [Recovered/Resolved]

NARRATIVE: CASE EVENT DATE: 201611
